FAERS Safety Report 6585390-6 (Version None)
Quarter: 2010Q1

REPORT INFORMATION
  Report Type: 
  Country: None (occurrence: None)
  Receive Date: 20100217
  Receipt Date: 20100212
  Transmission Date: 20100710
  Serious: Yes (Other)
  Sender: FDA-Public Use
  Company Number: A0807324A

PATIENT
  Sex: Male

DRUGS (1)
  1. IMITREX [Suspect]
     Indication: MIGRAINE
     Route: 045
     Dates: start: 20020101, end: 20030101

REACTIONS (6)
  - ANOSMIA [None]
  - HYPOSMIA [None]
  - MYOCARDIAL INFARCTION [None]
  - NASAL DISORDER [None]
  - TINNITUS [None]
  - VISUAL ACUITY REDUCED [None]
